FAERS Safety Report 10442196 (Version 1)
Quarter: 2014Q3

REPORT INFORMATION
  Report Type: Spontaneous
  Country: IT (occurrence: IT)
  Receive Date: 20140909
  Receipt Date: 20140909
  Transmission Date: 20150326
  Serious: Yes (Other)
  Sender: FDA-Public Use
  Company Number: IT-TEVA-506230ISR

PATIENT
  Age: 59 Year
  Sex: Female

DRUGS (3)
  1. PAROXETINE [Suspect]
     Active Substance: PAROXETINE\PAROXETINE HYDROCHLORIDE
     Indication: PRODUCT USED FOR UNKNOWN INDICATION
     Dosage: 20 MILLIGRAM DAILY;
     Route: 048
     Dates: start: 20110901, end: 20140722
  2. CONTRAMAL - 100 MG COMPRESSE A RILASCIO PROLUNGATO - GRUNENTHAL ITALIA [Interacting]
     Active Substance: TRAMADOL HYDROCHLORIDE
     Indication: BACK PAIN
     Dosage: 200 MILLIGRAM DAILY;
     Route: 048
     Dates: start: 20140720, end: 20140722
  3. TRIATEC - 5 MG COMPRESSE DIVISIBILI [Concomitant]
     Indication: HYPERTENSION
     Route: 048
     Dates: start: 20110901, end: 20140722

REACTIONS (6)
  - Syncope [Recovering/Resolving]
  - Vomiting [Recovering/Resolving]
  - Facial asymmetry [Recovering/Resolving]
  - Headache [Recovering/Resolving]
  - Drug interaction [Recovering/Resolving]
  - Paraesthesia [Recovering/Resolving]

NARRATIVE: CASE EVENT DATE: 20140722
